FAERS Safety Report 10584546 (Version 1)
Quarter: 2014Q4

REPORT INFORMATION
  Report Type: Spontaneous
  Country: US (occurrence: None)
  Receive Date: 20141113
  Receipt Date: 20141113
  Transmission Date: 20150529
  Serious: Yes (Disabling)
  Sender: FDA-Public Use
  Company Number: None

PATIENT
  Sex: Male
  Weight: 94.35 kg

DRUGS (1)
  1. VIAGRA [Suspect]
     Active Substance: SILDENAFIL CITRATE
     Indication: ERECTILE DYSFUNCTION
     Dates: start: 1999, end: 2013

REACTIONS (4)
  - Optic atrophy [None]
  - Blindness unilateral [None]
  - Blindness [None]
  - Activities of daily living impaired [None]

NARRATIVE: CASE EVENT DATE: 1999
